FAERS Safety Report 5446986-8 (Version None)
Quarter: 2007Q3

REPORT INFORMATION
  Report Type: 
  Country: None (occurrence: None)
  Receive Date: 20070803
  Receipt Date: 20070416
  Transmission Date: 20080115
  Serious: Yes (Other)
  Sender: FDA-Public Use
  Company Number: US-JNJFOC-20070403443

PATIENT
  Age: 72 Year
  Sex: Female

DRUGS (11)
  1. TYLENOL (CAPLET) [Suspect]
     Indication: PAIN
     Dosage: 2000 MG, 1 IN 4 HOUR, ORAL
     Route: 048
     Dates: start: 20070401
  2. TRAMADOL (TRAMADOL HYDROCHLORIDE) UNSPECIFIED [Concomitant]
  3. LIPITOR [Concomitant]
  4. BENICAR [Concomitant]
  5. PAXIL [Concomitant]
  6. WELLBUTRIN [Concomitant]
  7. XANAX [Concomitant]
  8. ACIPHEX [Concomitant]
  9. REGLAN [Concomitant]
  10. ASPIRIN [Concomitant]
  11. FOLIC ACID [Concomitant]

REACTIONS (2)
  - OEDEMA PERIPHERAL [None]
  - OVERDOSE [None]
